FAERS Safety Report 7971028-X (Version None)
Quarter: 2011Q4

REPORT INFORMATION
  Report Type: 
  Country: None (occurrence: None)
  Receive Date: 20111212
  Receipt Date: 20111212
  Transmission Date: 20120403
  Serious: Yes (Hospitalization)
  Sender: FDA-Public Use
  Company Number: None

PATIENT
  Age: 74 Year
  Sex: Female

DRUGS (12)
  1. LEVOFLOXACIN [Suspect]
     Route: 048
  2. GUAIFENESIN [Concomitant]
     Route: 048
  3. LASIX? [Concomitant]
     Route: 048
  4. SIMVASTATIN [Concomitant]
     Route: 048
  5. TAMOXIFEN [Concomitant]
     Route: 048
  6. NIFEDIPINE [Concomitant]
     Route: 048
  7. INSULIN ASPART -NOVOLOG? [Concomitant]
     Route: 058
  8. IPRATROPIUM/ALBUTEROL -DUONEB? [Concomitant]
  9. DOCUSATE [Concomitant]
     Route: 048
  10. INSULIN NPH -HUMULIN? [Concomitant]
     Route: 058
  11. ACETAMINOPHEN [Concomitant]
     Route: 048
  12. LABETALOL HCL [Concomitant]
     Route: 048

REACTIONS (5)
  - METABOLIC ACIDOSIS [None]
  - RENAL FAILURE ACUTE [None]
  - RASH GENERALISED [None]
  - TUBULOINTERSTITIAL NEPHRITIS [None]
  - HAEMODIALYSIS [None]
